FAERS Safety Report 19992523 (Version 1)
Quarter: 2021Q4

REPORT INFORMATION
  Report Type: Report from Study
  Country: EG (occurrence: EG)
  Receive Date: 20211025
  Receipt Date: 20211025
  Transmission Date: 20220303
  Serious: Yes (Other)
  Sender: FDA-Public Use
  Company Number: EG-NOVARTISPH-NVSC2021EG235955

PATIENT
  Age: 71 Year
  Sex: Male

DRUGS (22)
  1. ENTRESTO [Suspect]
     Active Substance: SACUBITRIL\VALSARTAN
     Indication: Cardiac failure
     Dosage: 200 MG, BID
     Route: 048
     Dates: start: 2020, end: 202101
  2. ENTRESTO [Suspect]
     Active Substance: SACUBITRIL\VALSARTAN
     Dosage: 100 MG, QD
     Route: 048
     Dates: start: 20200920, end: 202105
  3. ENTRESTO [Suspect]
     Active Substance: SACUBITRIL\VALSARTAN
     Dosage: 0.5 (100 MG) DF, QD (HALF TABLET)
     Route: 048
     Dates: start: 202101, end: 202102
  4. ENTRESTO [Suspect]
     Active Substance: SACUBITRIL\VALSARTAN
     Dosage: 100 MG, QD
     Route: 048
     Dates: start: 202106
  5. HYDROCHLOROTHIAZIDE\VALSARTAN [Suspect]
     Active Substance: HYDROCHLOROTHIAZIDE\VALSARTAN
     Indication: Cardiac failure
     Dosage: 1 DF, QD
     Route: 048
     Dates: start: 202105, end: 202106
  6. NITRODERM [Suspect]
     Active Substance: NITROGLYCERIN
     Indication: Cardiac disorder
     Dosage: 1 DF, QD
     Route: 065
     Dates: start: 202010, end: 202108
  7. NITRODERM [Suspect]
     Active Substance: NITROGLYCERIN
     Indication: Dyspnoea
  8. NAFRONYL [Concomitant]
     Active Substance: NAFRONYL
     Indication: Neuropathy peripheral
     Dosage: 1 DF, BID
     Route: 065
  9. GLYBOFEN [Concomitant]
     Indication: Diabetes mellitus
     Dosage: 1 DF, BID
     Route: 065
  10. DOSIN [Concomitant]
     Indication: Prostatitis
     Dosage: 1 DF, QD
     Route: 065
  11. DAPAGLIFLOZIN [Concomitant]
     Active Substance: DAPAGLIFLOZIN
     Indication: Diabetes mellitus
     Dosage: 1 DF, QD
     Route: 065
  12. DAPAGLIFLOZIN [Concomitant]
     Active Substance: DAPAGLIFLOZIN
     Indication: Cardiac failure
  13. ATOREZA [Concomitant]
     Indication: Hyperlipidaemia
     Dosage: 1 DF, QD
     Route: 065
  14. ASPIRIN [Concomitant]
     Active Substance: ASPIRIN
     Indication: Cardiac failure
     Dosage: 1 DF, QD
     Route: 065
  15. IVABRADINE [Concomitant]
     Active Substance: IVABRADINE
     Indication: Thrombosis prophylaxis
     Dosage: 1 DF, BID
     Route: 065
  16. IVABRADINE [Concomitant]
     Active Substance: IVABRADINE
     Indication: Cardiac failure
  17. CARVEDILOL [Concomitant]
     Active Substance: CARVEDILOL
     Indication: Hypertension
     Dosage: 1 DF, BID
     Route: 065
  18. CARVEDILOL [Concomitant]
     Active Substance: CARVEDILOL
     Dosage: 1 DF, QD
     Route: 065
  19. RESTOLAM [Concomitant]
     Indication: Sleep disorder
     Dosage: 1 DF, QD
     Route: 065
  20. .ALPHA.-LIPOIC ACID [Concomitant]
     Active Substance: .ALPHA.-LIPOIC ACID
     Indication: Neuritis
     Dosage: 1 DF, QD
     Route: 065
  21. DAPAGLIFLOZIN [Concomitant]
     Active Substance: DAPAGLIFLOZIN
     Indication: Diabetes mellitus
     Dosage: 1 DF, QD
     Route: 065
  22. DAPAGLIFLOZIN [Concomitant]
     Active Substance: DAPAGLIFLOZIN
     Indication: Cardiac disorder

REACTIONS (6)
  - Glycosylated haemoglobin increased [Unknown]
  - Dyspnoea [Recovered/Resolved]
  - Blood creatinine increased [Recovered/Resolved]
  - Orchitis [Recovering/Resolving]
  - Fatigue [Recovering/Resolving]
  - Wrong technique in product usage process [Unknown]

NARRATIVE: CASE EVENT DATE: 20200101
